FAERS Safety Report 4874516-8 (Version None)
Quarter: 2006Q1

REPORT INFORMATION
  Report Type: 
  Country: None (occurrence: None)
  Receive Date: 20060106
  Receipt Date: 20051228
  Transmission Date: 20060701
  Serious: Yes (Hospitalization)
  Sender: FDA-Public Use
  Company Number: FR-BOEHRINGER INGELHEIM PHARMACEUTICALS, INC.-2005-FF-00956FF

PATIENT
  Age: 36 Year
  Sex: Female

DRUGS (6)
  1. VIRAMUNE [Suspect]
     Indication: HIV INFECTION
     Route: 048
     Dates: start: 20051108
  2. IBUPROFEN [Concomitant]
     Route: 048
     Dates: start: 20051201, end: 20051202
  3. EPIVIR [Concomitant]
     Route: 048
     Dates: start: 20051108
  4. VIREAD [Concomitant]
     Route: 048
     Dates: start: 20051108
  5. AUGMENTIN '125' [Concomitant]
     Route: 048
     Dates: start: 20051201, end: 20051202
  6. EFFERALGAN [Concomitant]
     Route: 048
     Dates: start: 20051201, end: 20051202

REACTIONS (7)
  - ABDOMINAL PAIN [None]
  - CHILLS [None]
  - DIARRHOEA [None]
  - EYELID OEDEMA [None]
  - OEDEMA MOUTH [None]
  - RASH [None]
  - RASH GENERALISED [None]
